FAERS Safety Report 8843428 (Version 1)
Quarter: 2012Q4

REPORT INFORMATION
  Report Type: 
  Country: US (occurrence: US)
  Receive Date: 20121016
  Receipt Date: 20121016
  Transmission Date: 20130627
  Serious: Yes (Other)
  Sender: FDA-Public Use
  Company Number: US-ROCHE-1131777

PATIENT
  Age: 13 Year
  Sex: Female

DRUGS (2)
  1. NUTROPIN [Suspect]
     Indication: DWARFISM
     Route: 058
     Dates: start: 19990331
  2. NUTROPIN [Suspect]
     Indication: GROWTH HORMONE DEFICIENCY

REACTIONS (5)
  - Bone deformity [Unknown]
  - Arthralgia [Recovered/Resolved]
  - Cough [Unknown]
  - Pyrexia [Unknown]
  - Snoring [Unknown]
